FAERS Safety Report 5636254-3 (Version None)
Quarter: 2008Q1

REPORT INFORMATION
  Report Type: 
  Country: None (occurrence: None)
  Receive Date: 20080225
  Receipt Date: 20080124
  Transmission Date: 20080703
  Serious: No
  Sender: FDA-Public Use
  Company Number: US-BAYER-200812578NA

PATIENT
  Sex: Female
  Weight: 66 kg

DRUGS (1)
  1. MIRENA [Suspect]
     Indication: CONTRACEPTION
     Route: 015
     Dates: start: 20080117

REACTIONS (4)
  - ANOREXIA [None]
  - DIZZINESS [None]
  - IUCD COMPLICATION [None]
  - PYREXIA [None]
